FAERS Safety Report 21746756 (Version 1)
Quarter: 2022Q4

REPORT INFORMATION
  Report Type: Spontaneous
  Country: CA (occurrence: None)
  Receive Date: 20221219
  Receipt Date: 20221219
  Transmission Date: 20230113
  Serious: Yes (Other)
  Sender: FDA-Public Use
  Company Number: CA-PFIZER INC-202201360829

PATIENT
  Age: 45 Year
  Sex: Male
  Weight: 83.5 kg

DRUGS (4)
  1. METHOTREXATE [Suspect]
     Active Substance: METHOTREXATE
     Indication: Colitis
     Route: 065
     Dates: start: 20220914, end: 20221130
  2. METHOTREXATE [Suspect]
     Active Substance: METHOTREXATE
     Route: 065
     Dates: start: 20220914, end: 20221204
  3. PREDNISONE [Concomitant]
     Active Substance: PREDNISONE
     Dosage: 20 AND PLUS MG/DAY
     Route: 065
  4. ENTOCORT ENEMA [Concomitant]
     Route: 065

REACTIONS (7)
  - Haematochezia [Recovering/Resolving]
  - Drug ineffective for unapproved indication [Unknown]
  - Product use in unapproved indication [Unknown]
  - Diarrhoea [Recovering/Resolving]
  - Mucous stools [Recovering/Resolving]
  - Proctalgia [Recovering/Resolving]
  - Condition aggravated [Recovering/Resolving]

NARRATIVE: CASE EVENT DATE: 20220101
